FAERS Safety Report 11247756 (Version 1)
Quarter: 2015Q2

REPORT INFORMATION
  Report Type: Spontaneous
  Country: US (occurrence: None)
  Receive Date: 20150617
  Receipt Date: 20150617
  Transmission Date: 20150821
  Serious: No
  Sender: FDA-Public Use
  Company Number: 2014TASUS000473

PATIENT
  Age: 71 Year
  Sex: Female
  Weight: 61.7 kg

DRUGS (8)
  1. LIPITOR [Concomitant]
     Active Substance: ATORVASTATIN CALCIUM
  2. HETLIOZ [Suspect]
     Active Substance: TASIMELTEON
     Indication: CIRCADIAN RHYTHM SLEEP DISORDER
     Route: 048
     Dates: start: 201405, end: 20140812
  3. VITAMIN D (COLECALCIFEROL) [Concomitant]
  4. VITAMINS [Concomitant]
     Active Substance: VITAMINS
  5. VITAMIN B COMPLEX (CALCIUM PANTOTHENATE, NICOTINAMIDE, PYRIDOXINE HYDROCHLORIDE, RIBOFLAVIN, THIAMINE HYDROCHLORIDE) [Concomitant]
  6. FISH OIL (COD-LIVER OIL) [Concomitant]
  7. CLARITIN [Concomitant]
     Active Substance: LORATADINE
  8. CALCIUM (CALCIUM GLUCONATE) [Concomitant]

REACTIONS (2)
  - Drug ineffective [None]
  - Incorrect drug administration duration [None]

NARRATIVE: CASE EVENT DATE: 201405
